FAERS Safety Report 9032171 (Version 2)
Quarter: 2013Q2

REPORT INFORMATION
  Report Type: Not Available
  Country: NO (occurrence: NO)
  Receive Date: 20130122
  Receipt Date: 20130506
  Transmission Date: 20140414
  Serious: Yes (Other)
  Sender: FDA-Public Use
  Company Number: NO-ASTELLAS-2013EU000256

PATIENT
  Age: 33 Year
  Sex: Female

DRUGS (6)
  1. PROGRAF [Suspect]
     Indication: RENAL TRANSPLANT
     Dosage: DOSE WAS REDUCED 20121003 TO 2 MG TWICE DAILY
     Route: 048
     Dates: start: 2009
  2. PROGRAF [Interacting]
     Dosage: 2 MG, BID
     Route: 048
     Dates: start: 20121003
  3. DOSTINEX [Interacting]
     Indication: HYPERPROLACTINAEMIA
     Route: 048
     Dates: start: 20120914
  4. PREDNISONE [Concomitant]
     Dosage: 5 MG, UID/QD
     Route: 048
  5. PREDNISONE [Concomitant]
     Route: 048
  6. ALDOMET [Concomitant]
     Route: 048

REACTIONS (4)
  - Drug interaction [Recovered/Resolved]
  - Tenderness [Not Recovered/Not Resolved]
  - Haematuria [Recovered/Resolved]
  - Immunosuppressant drug level increased [Recovered/Resolved]
